APPROVED DRUG PRODUCT: GENTAMICIN SULFATE IN SODIUM CHLORIDE 0.9% IN PLASTIC CONTAINER
Active Ingredient: GENTAMICIN SULFATE
Strength: EQ 80MG BASE/100ML
Dosage Form/Route: INJECTABLE;INJECTION
Application: A062814 | Product #011
Applicant: B BRAUN MEDICAL INC
Approved: Aug 28, 1987 | RLD: No | RS: No | Type: DISCN